FAERS Safety Report 14267826 (Version 1)
Quarter: 2017Q4

REPORT INFORMATION
  Report Type: Spontaneous
  Country: CO (occurrence: CO)
  Receive Date: 20171211
  Receipt Date: 20171211
  Transmission Date: 20180321
  Serious: Yes (Other)
  Sender: FDA-Public Use
  Company Number: PHHY2017CO180184

PATIENT
  Age: 72 Year

DRUGS (1)
  1. IMATINIB [Suspect]
     Active Substance: IMATINIB
     Indication: GASTRIC CANCER
     Route: 065

REACTIONS (3)
  - Product use issue [Unknown]
  - Gastric cancer [Unknown]
  - Malignant neoplasm progression [Unknown]
